FAERS Safety Report 11878319 (Version 1)
Quarter: 2015Q4

REPORT INFORMATION
  Report Type: Spontaneous
  Country: US (occurrence: None)
  Receive Date: 20151229
  Receipt Date: 20151229
  Transmission Date: 20160305
  Serious: No
  Sender: FDA-Public Use
  Company Number: None

PATIENT
  Age: 55 Year
  Sex: Female

DRUGS (1)
  1. TECFIDERA [Suspect]
     Active Substance: DIMETHYL FUMARATE
     Indication: MULTIPLE SCLEROSIS
     Dosage: TECFIDERA 240MG  TWICE DAILY  ORAL
     Route: 048
     Dates: start: 201303

REACTIONS (2)
  - Flushing [None]
  - Hot flush [None]

NARRATIVE: CASE EVENT DATE: 20151101
